FAERS Safety Report 4483437-4 (Version None)
Quarter: 2004Q4

REPORT INFORMATION
  Report Type: 
  Country: None (occurrence: None)
  Receive Date: 20041020
  Receipt Date: 20041014
  Transmission Date: 20050328
  Serious: Yes (Death)
  Sender: FDA-Public Use
  Company Number: USA-2004-0017222

PATIENT
  Age: 91 Year
  Sex: 0

DRUGS (1)
  1. MORPHINE SULFATE [Suspect]

REACTIONS (1)
  - CARDIAC DISORDER [None]
